FAERS Safety Report 21397597 (Version 1)
Quarter: 2022Q3

REPORT INFORMATION
  Report Type: Spontaneous
  Country: US (occurrence: None)
  Receive Date: 20220929
  Receipt Date: 20220929
  Transmission Date: 20221027
  Serious: Yes (Other)
  Sender: FDA-Public Use
  Company Number: None

PATIENT
  Sex: Male

DRUGS (10)
  1. TASIGNA [Suspect]
     Active Substance: NILOTINIB
     Indication: Chronic myeloid leukaemia
     Route: 048
     Dates: start: 20200917
  2. EFFEXOR XR [Concomitant]
     Active Substance: VENLAFAXINE HYDROCHLORIDE
  3. FLOMAX [Concomitant]
  4. ACETAMINOPHEN\HYDROCODONE [Concomitant]
     Active Substance: ACETAMINOPHEN\HYDROCODONE
  5. LISINOPRIL [Concomitant]
  6. MELATONIN [Concomitant]
     Active Substance: MELATONIN
  7. POT CHLORIDE [Concomitant]
  8. PROPRANOLOL [Concomitant]
  9. SOMA [Concomitant]
  10. SYNTHROID [Concomitant]

REACTIONS (1)
  - Hernia repair [None]
